FAERS Safety Report 10301256 (Version 1)
Quarter: 2014Q3

REPORT INFORMATION
  Report Type: Spontaneous
  Country: US (occurrence: US)
  Receive Date: 20140714
  Receipt Date: 20140714
  Transmission Date: 20150326
  Serious: Yes (Other)
  Sender: FDA-Public Use
  Company Number: US-SA-2014SA091260

PATIENT
  Age: 0 Day
  Sex: Male
  Weight: 5.89 kg

DRUGS (1)
  1. CEREZYME [Suspect]
     Active Substance: IMIGLUCERASE
     Indication: FOETAL EXPOSURE TIMING UNSPECIFIED
     Dosage: DOSE:60 UNIT(S)
     Route: 064

REACTIONS (2)
  - Hyperbilirubinaemia [Recovered/Resolved]
  - Foetal exposure during pregnancy [Unknown]

NARRATIVE: CASE EVENT DATE: 20140221
